FAERS Safety Report 4530725-9 (Version None)
Quarter: 2004Q4

REPORT INFORMATION
  Report Type: 
  Country: None (occurrence: None)
  Receive Date: 20041217
  Receipt Date: 20041208
  Transmission Date: 20050328
  Serious: Yes (Life-Threatening)
  Sender: FDA-Public Use
  Company Number: JP-GLAXOSMITHKLINE-B0360052A

PATIENT
  Age: 75 Year
  Sex: Male

DRUGS (5)
  1. VALTREX [Suspect]
     Indication: HERPES ZOSTER
     Dosage: 1000MG PER DAY
     Route: 048
     Dates: start: 20041021, end: 20041024
  2. ZYLORIC [Concomitant]
     Route: 048
  3. TINELAC [Concomitant]
     Route: 048
  4. PRECIPITATED CALCIUM CARBONATE [Concomitant]
     Route: 048
  5. ROCALTROL [Concomitant]
     Route: 065

REACTIONS (1)
  - ENCEPHALITIS [None]
